FAERS Safety Report 10060852 (Version 2)
Quarter: 2014Q2

REPORT INFORMATION
  Report Type: Report from Study
  Country: PR (occurrence: US)
  Receive Date: 20140404
  Receipt Date: 20140512
  Transmission Date: 20141212
  Serious: Yes (Hospitalization)
  Sender: FDA-Public Use
  Company Number: US-ACTELION-A-US2014-97014

PATIENT
  Age: 76 Year
  Sex: Female

DRUGS (11)
  1. MACITENTAN [Suspect]
     Indication: PULMONARY ARTERIAL HYPERTENSION
     Dosage: 10 MG, UNK
     Route: 048
     Dates: start: 20140130
  2. OMEPRAZOLE [Concomitant]
  3. LEVOXYL [Concomitant]
  4. ADVAIR [Concomitant]
  5. REVATIO [Concomitant]
  6. LASIX [Concomitant]
  7. CARTIA XT [Concomitant]
  8. COMBIVENT [Concomitant]
  9. ALBUTEROL [Concomitant]
  10. OMEGA 3 6 9 [Concomitant]
  11. VITAMIN C + E [Concomitant]

REACTIONS (3)
  - Supraventricular tachycardia [Recovered/Resolved]
  - Cardiac ablation [Recovered/Resolved]
  - Oedema peripheral [Recovered/Resolved]
